FAERS Safety Report 8759731 (Version 2)
Quarter: 2012Q4

REPORT INFORMATION
  Report Type: 
  Country: IT (occurrence: IT)
  Receive Date: 20120829
  Receipt Date: 20120911
  Transmission Date: 20130627
  Serious: Yes (Life-Threatening, Other)
  Sender: FDA-Public Use
  Company Number: IT-ABBOTT-12P-083-0974181-00

PATIENT
  Age: 72 Year
  Sex: Male

DRUGS (1)
  1. PROLONGED RELEASE SODIUM VALPROATE [Suspect]
     Indication: MENTAL DISORDER
     Dosage: 60 g

REACTIONS (8)
  - Ventricular tachycardia [Recovered/Resolved]
  - Overdose [Recovered/Resolved]
  - Hyperammonaemia [Recovered/Resolved]
  - Hypokalaemia [Recovered/Resolved]
  - Electrocardiogram QT prolonged [Recovered/Resolved]
  - Thrombocytopenia [Recovered/Resolved]
  - Nodal rhythm [Recovered/Resolved]
  - Haemodynamic instability [Recovered/Resolved]
